FAERS Safety Report 5187944-0 (Version None)
Quarter: 2006Q4

REPORT INFORMATION
  Report Type: 
  Country: None (occurrence: None)
  Receive Date: 20061221
  Receipt Date: 20061208
  Transmission Date: 20070319
  Serious: Yes (Hospitalization)
  Sender: FDA-Public Use
  Company Number: CHWYE802211DEC06

PATIENT
  Age: 70 Year
  Sex: Female

DRUGS (2)
  1. ENBREL [Suspect]
     Indication: DRUG USE FOR UNKNOWN INDICATION
     Dosage: 50 MG
     Dates: start: 20050223, end: 20060101
  2. AULIN [Concomitant]

REACTIONS (3)
  - ENTEROBACTER INFECTION [None]
  - PNEUMONIA STREPTOCOCCAL [None]
  - PYELONEPHRITIS [None]
